FAERS Safety Report 9487119 (Version 1)
Quarter: 2013Q3

REPORT INFORMATION
  Report Type: Report from Study
  Country: US (occurrence: US)
  Receive Date: 20130829
  Receipt Date: 20130829
  Transmission Date: 20140515
  Serious: Yes (Hospitalization)
  Sender: FDA-Public Use
  Company Number: US-ABBOTT-13P-163-1136562-00

PATIENT
  Age: 72 Year
  Sex: Female

DRUGS (10)
  1. HUMIRA [Suspect]
     Indication: CROHN^S DISEASE
     Dosage: ON THURSDAY OF EVERY OTHER WEEK
     Dates: start: 20130620
  2. ASPIRIN [Concomitant]
     Indication: THROMBOSIS
     Dosage: DAILY
  3. CALCIUM CITRATE [Concomitant]
     Indication: OSTEOPOROSIS
     Dosage: DAILY
  4. VITAMIN D3 [Concomitant]
     Indication: OSTEOPOROSIS
     Dosage: DAILY
  5. IRON [Concomitant]
     Indication: OSTEOPOROSIS
     Dosage: 65 MG DAILY
  6. OMEGA 3 [Concomitant]
     Indication: TYPICAL AURA WITHOUT HEADACHE
     Dosage: DAILY
  7. OMEGA 3 [Concomitant]
     Indication: PROPHYLAXIS
  8. DICYCLOMINE [Concomitant]
     Indication: ABDOMINAL PAIN
     Dosage: ALLOWED 2-3 CAPSULES, THREE TIMES DAILY AS NEEDED
  9. DICYCLOMINE [Concomitant]
     Indication: CROHN^S DISEASE
  10. CELEXA [Concomitant]
     Indication: DEPRESSION
     Dosage: 30 MG (1.5 TABLETS) DAILY

REACTIONS (3)
  - Gait disturbance [Not Recovered/Not Resolved]
  - Aphasia [Not Recovered/Not Resolved]
  - Back pain [Not Recovered/Not Resolved]
